FAERS Safety Report 18316027 (Version 1)
Quarter: 2020Q3

REPORT INFORMATION
  Report Type: Spontaneous
  Country: DE (occurrence: DE)
  Receive Date: 20200927
  Receipt Date: 20200927
  Transmission Date: 20201103
  Serious: Yes (Hospitalization)
  Sender: FDA-Public Use
  Company Number: DE-TEVA-2020-DE-1831805

PATIENT
  Age: 53 Year
  Sex: Male
  Weight: 110 kg

DRUGS (11)
  1. TORASEMID [Suspect]
     Active Substance: TORSEMIDE
     Dosage: 50 MG, INCREASED FOR 1 WEEK
     Route: 065
  2. GABAPENTIN. [Concomitant]
     Active Substance: GABAPENTIN
     Dosage: 300 MG, 1X
  3. ASS 100 [Concomitant]
     Active Substance: ASPIRIN
     Dosage: 100 MG
  4. CLOPIDOGREL [Concomitant]
     Active Substance: CLOPIDOGREL BISULFATE
     Dosage: 75 MILLIGRAM DAILY; 1?0?0?0
  5. LOSARTAN. [Concomitant]
     Active Substance: LOSARTAN
     Dosage: 50 MG, 2X
  6. METOPROLOL. [Concomitant]
     Active Substance: METOPROLOL
     Dosage: 47.5 MG, 2X
  7. ACTRAPID [Concomitant]
     Active Substance: INSULIN HUMAN
     Dosage: ACCORDING TO SCHEME
  8. OMEPRAZOL [Concomitant]
     Active Substance: OMEPRAZOLE
     Dosage: 20 MG, 1X
  9. XIPAMID [Suspect]
     Active Substance: XIPAMIDE
     Dosage: 10 MG
     Route: 065
  10. FEBUXOSTAT. [Concomitant]
     Active Substance: FEBUXOSTAT
     Dosage: 120 MILLIGRAM DAILY; 1?0?0?0
  11. ATORVASTATIN [Concomitant]
     Active Substance: ATORVASTATIN
     Dosage: 80 MG, 1X

REACTIONS (3)
  - Weight decreased [Recovering/Resolving]
  - Dyspnoea exertional [Recovering/Resolving]
  - Renal impairment [Recovering/Resolving]
